FAERS Safety Report 20786242 (Version 1)
Quarter: 2022Q2

REPORT INFORMATION
  Report Type: Spontaneous
  Country: US (occurrence: None)
  Receive Date: 20220504
  Receipt Date: 20220504
  Transmission Date: 20220721
  Serious: No
  Sender: FDA-Public Use
  Company Number: US-ROCHE-2972565

PATIENT
  Sex: Female
  Weight: 124 kg

DRUGS (2)
  1. OCREVUS [Suspect]
     Active Substance: OCRELIZUMAB
     Indication: Relapsing-remitting multiple sclerosis
     Dosage: LAST DOSE WAS 23/JUL/2021
     Route: 042
     Dates: start: 20191021
  2. OCREVUS [Suspect]
     Active Substance: OCRELIZUMAB
     Route: 042
     Dates: start: 20210723

REACTIONS (2)
  - Maternal exposure during pregnancy [Unknown]
  - Hypertension [Unknown]
